FAERS Safety Report 4827554-5 (Version None)
Quarter: 2005Q4

REPORT INFORMATION
  Report Type: 
  Country: None (occurrence: None)
  Receive Date: 20051114
  Receipt Date: 20051102
  Transmission Date: 20060501
  Serious: Yes (Hospitalization)
  Sender: FDA-Public Use
  Company Number: FR-NOVOPROD-248349

PATIENT
  Age: 73 Year
  Sex: Female
  Weight: 92 kg

DRUGS (6)
  1. NOVOMIX 30 FLEXPEN [Suspect]
     Indication: INSULIN-REQUIRING TYPE II DIABETES MELLITUS
     Dosage: 38 IU, QD (20 + 18 IU)
     Route: 058
  2. CORDARONE [Concomitant]
     Dosage: 200 MG, QD
     Route: 048
  3. DILTIAZEM HYDROCHLORIDE [Concomitant]
     Dosage: 300 MG, UNK
     Route: 048
     Dates: start: 20050601
  4. MEDIATOR [Concomitant]
     Route: 048
     Dates: start: 20050601, end: 20050622
  5. ALDALIX [Concomitant]
     Dosage: 1 MG, UNK
     Route: 048
     Dates: start: 20050601, end: 20050622
  6. PREVISCAN [Concomitant]
     Dosage: UNK, UNK
     Route: 048

REACTIONS (11)
  - ACUTE PULMONARY OEDEMA [None]
  - ANOREXIA [None]
  - ASTHENIA [None]
  - DEHYDRATION [None]
  - HYPERKALAEMIA [None]
  - HYPOCAPNIA [None]
  - HYPONATRAEMIA [None]
  - HYPOXIA [None]
  - NAUSEA [None]
  - PLATELET COUNT INCREASED [None]
  - THIRST [None]
